FAERS Safety Report 20122247 (Version 1)
Quarter: 2021Q4

REPORT INFORMATION
  Report Type: Spontaneous
  Country: US (occurrence: US)
  Receive Date: 20211128
  Receipt Date: 20211128
  Transmission Date: 20220303
  Serious: No
  Sender: FDA-Public Use
  Company Number: US-SANOFI-00861044

PATIENT

DRUGS (3)
  1. SELENIUM SULFIDE [Suspect]
     Active Substance: SELENIUM SULFIDE
  2. SELENIUM SULFIDE [Concomitant]
     Active Substance: SELENIUM SULFIDE
     Indication: Skin exfoliation
  3. SELENIUM SULFIDE [Concomitant]
     Active Substance: SELENIUM SULFIDE
     Indication: Pruritus

REACTIONS (1)
  - Hair colour changes [Unknown]
